FAERS Safety Report 4730584-5 (Version None)
Quarter: 2005Q3

REPORT INFORMATION
  Report Type: 
  Country: None (occurrence: None)
  Receive Date: 20050725
  Receipt Date: 20050331
  Transmission Date: 20060218
  Serious: No
  Sender: FDA-Public Use
  Company Number: USA050393267

PATIENT
  Age: 8 Year
  Sex: Male
  Weight: 29 kg

DRUGS (4)
  1. STRATTERA [Suspect]
     Indication: ATTENTION DEFICIT/HYPERACTIVITY DISORDER
     Dosage: 140 MG DAY
     Dates: start: 20030301
  2. EFFEXOR [Concomitant]
  3. CONCERTA [Concomitant]
  4. FOCALIN [Concomitant]

REACTIONS (7)
  - ABNORMAL BEHAVIOUR [None]
  - DISTURBANCE IN ATTENTION [None]
  - DRUG INEFFECTIVE [None]
  - EDUCATIONAL PROBLEM [None]
  - LOGORRHOEA [None]
  - PRESCRIBED OVERDOSE [None]
  - RESTLESSNESS [None]
